FAERS Safety Report 6533214-5 (Version None)
Quarter: 2010Q1

REPORT INFORMATION
  Report Type: 
  Country: None (occurrence: None)
  Receive Date: 20100111
  Receipt Date: 20100104
  Transmission Date: 20100710
  Serious: Yes (Hospitalization, Other)
  Sender: FDA-Public Use
  Company Number: US-JNJFOC-20091200895

PATIENT
  Sex: Male
  Weight: 76 kg

DRUGS (10)
  1. DOXORUBICIN HCL [Suspect]
     Indication: MULTIPLE MYELOMA
     Route: 042
  2. BORTEZOMIB [Suspect]
     Indication: MULTIPLE MYELOMA
     Route: 042
  3. VORINOSTAT [Suspect]
     Indication: MULTIPLE MYELOMA
     Route: 048
  4. COMPAZINE [Concomitant]
     Route: 065
  5. NEXIUM [Concomitant]
     Route: 065
  6. MEVALONIC ACID [Concomitant]
     Route: 048
  7. CRESTOR [Concomitant]
     Route: 065
  8. ASPIRIN [Concomitant]
     Route: 065
  9. VITAMIN B6 [Concomitant]
     Route: 065
  10. VALTREX [Concomitant]
     Route: 065

REACTIONS (2)
  - ATRIAL FLUTTER [None]
  - LEFT VENTRICULAR DYSFUNCTION [None]
